FAERS Safety Report 5036731-2 (Version None)
Quarter: 2006Q2

REPORT INFORMATION
  Report Type: 
  Country: None (occurrence: None)
  Receive Date: 20060622
  Receipt Date: 20060609
  Transmission Date: 20061013
  Serious: Yes (Hospitalization)
  Sender: FDA-Public Use
  Company Number: US-2006-014801

PATIENT
  Age: 48 Year
  Sex: Female

DRUGS (8)
  1. BETASERON [Suspect]
     Indication: MULTIPLE SCLEROSIS
     Dosage: 8 MIU, EVERY 2D, SUBCUTANEOUS
     Route: 058
     Dates: start: 20060309, end: 20060514
  2. GLIPIZIDE [Concomitant]
  3. GLUCOPHAGE [Concomitant]
  4. SYNTHROID [Concomitant]
  5. CLONOPIN [Concomitant]
  6. VICODIN [Concomitant]
  7. ALBUTEROL SPIROS [Concomitant]
  8. TEMAZEPAM [Concomitant]

REACTIONS (15)
  - ANAEMIA [None]
  - ANXIETY [None]
  - BLOOD PRESSURE ABNORMAL [None]
  - BLOOD PRESSURE DECREASED [None]
  - DEPRESSED MOOD [None]
  - DIFFICULTY IN WALKING [None]
  - DYSPNOEA [None]
  - FATIGUE [None]
  - FEELING ABNORMAL [None]
  - HEADACHE [None]
  - INJECTION SITE PAIN [None]
  - INSOMNIA [None]
  - LOSS OF CONSCIOUSNESS [None]
  - MUSCLE FATIGUE [None]
  - RENAL IMPAIRMENT [None]
